FAERS Safety Report 21372075 (Version 2)
Quarter: 2023Q1

REPORT INFORMATION
  Report Type: Spontaneous
  Country: BE (occurrence: BE)
  Receive Date: 20220923
  Receipt Date: 20230213
  Transmission Date: 20230417
  Serious: Yes (Other)
  Sender: FDA-Public Use
  Company Number: BE-ELI_LILLY_AND_COMPANY-BE202209006186

PATIENT
  Age: 63 Year
  Sex: Male
  Weight: 90 kg

DRUGS (3)
  1. TALTZ [Suspect]
     Active Substance: IXEKIZUMAB
     Indication: Psoriasis
     Dosage: 80 MG, OTHER (EVERY 4 WEEKS)
     Route: 058
     Dates: start: 202004
  2. PANTOMED [DEXPANTHENOL] [Concomitant]
     Indication: Product used for unknown indication
  3. NEOTIGASON [Concomitant]
     Active Substance: ACITRETIN
     Indication: Product used for unknown indication
     Dosage: 25 MG, 3/W

REACTIONS (3)
  - Basal cell carcinoma [Recovered/Resolved]
  - Dysplastic naevus [Recovered/Resolved]
  - Oesophageal candidiasis [Unknown]

NARRATIVE: CASE EVENT DATE: 20200401
